FAERS Safety Report 25334411 (Version 2)
Quarter: 2025Q2

REPORT INFORMATION
  Report Type: Report from Study
  Country: US (occurrence: US)
  Receive Date: 20250520
  Receipt Date: 20250524
  Transmission Date: 20250716
  Serious: Yes (Other)
  Sender: ABBVIE
  Company Number: US-ABBVIE-6288703

PATIENT
  Age: 63 Year
  Sex: Male
  Weight: 104.32 kg

DRUGS (5)
  1. RINVOQ [Suspect]
     Active Substance: UPADACITINIB
     Indication: Psoriatic arthropathy
     Dosage: 15 MILLIGRAM
     Route: 048
     Dates: start: 20241127, end: 20250321
  2. SIMVASTATIN [Concomitant]
     Active Substance: SIMVASTATIN
     Indication: Blood cholesterol
  3. METHOTREXATE [Concomitant]
     Active Substance: METHOTREXATE
     Indication: Arthritis
     Dosage: FORM STRENGTH: 15 MILLIGRAM
  4. LISINOPRIL [Concomitant]
     Active Substance: LISINOPRIL
     Indication: Hypertension
     Dosage: FORM STRENGTH: 10 MILLIGRAM
  5. FOLIC ACID [Concomitant]
     Active Substance: FOLIC ACID
     Indication: Arthritis

REACTIONS (2)
  - Nodule [Recovered/Resolved]
  - Cataract [Not Recovered/Not Resolved]

NARRATIVE: CASE EVENT DATE: 20250130
